FAERS Safety Report 9861884 (Version 3)
Quarter: 2014Q2

REPORT INFORMATION
  Report Type: Spontaneous
  Country: SE (occurrence: SE)
  Receive Date: 20140203
  Receipt Date: 20140519
  Transmission Date: 20141212
  Serious: Yes (Other)
  Sender: FDA-Public Use
  Company Number: SE-JNJFOC-20140117066

PATIENT
  Age: 21 Year
  Sex: Female

DRUGS (6)
  1. XARELTO [Suspect]
     Indication: THROMBOSIS PROPHYLAXIS
     Route: 048
     Dates: start: 20130604, end: 20131112
  2. XARELTO [Suspect]
     Indication: THROMBOSIS PROPHYLAXIS
     Route: 048
     Dates: start: 20130513, end: 20130603
  3. XARELTO [Suspect]
     Indication: DEEP VEIN THROMBOSIS
     Route: 048
     Dates: start: 20130604, end: 20131112
  4. XARELTO [Suspect]
     Indication: DEEP VEIN THROMBOSIS
     Route: 048
     Dates: start: 20130513, end: 20130603
  5. ETHINYLESTRADIOL [Concomitant]
     Route: 065
  6. LEVONORGESTREL [Concomitant]
     Route: 065

REACTIONS (1)
  - False positive investigation result [Recovered/Resolved]
